FAERS Safety Report 16196203 (Version 1)
Quarter: 2019Q2

REPORT INFORMATION
  Report Type: Spontaneous
  Country: TR (occurrence: TR)
  Receive Date: 20190415
  Receipt Date: 20190415
  Transmission Date: 20190711
  Serious: Yes (Death)
  Sender: FDA-Public Use
  Company Number: TR-ACTELION-A-CH2019-189058

PATIENT

DRUGS (3)
  1. TADALAFIL. [Suspect]
     Active Substance: TADALAFIL
     Indication: PULMONARY ARTERIAL HYPERTENSION
     Route: 048
  2. VENTAVIS [Suspect]
     Active Substance: ILOPROST
     Indication: PULMONARY ARTERIAL HYPERTENSION
     Route: 055
  3. BOSENTAN. [Suspect]
     Active Substance: BOSENTAN
     Indication: PULMONARY ARTERIAL HYPERTENSION
     Route: 048

REACTIONS (9)
  - Pneumonia [Fatal]
  - Multiple organ dysfunction syndrome [Fatal]
  - Therapeutic response decreased [Unknown]
  - Death [Fatal]
  - Sepsis [Fatal]
  - Leukopenia [Unknown]
  - Respiratory tract infection [Unknown]
  - Transaminases increased [Unknown]
  - Anaemia [Unknown]
